FAERS Safety Report 9989439 (Version 1)
Quarter: 2014Q1

REPORT INFORMATION
  Report Type: Report from Study
  Country: US (occurrence: US)
  Receive Date: 20140310
  Receipt Date: 20140310
  Transmission Date: 20141002
  Serious: No
  Sender: FDA-Public Use
  Company Number: US-ABBVIE-13P-163-1130475-00

PATIENT
  Age: 62 Year
  Sex: Male

DRUGS (17)
  1. DIOVAN [Concomitant]
     Indication: CARDIAC DISORDER
     Dosage: 1/2 TAB DAILY
  2. FUROSEMIDE [Concomitant]
     Indication: FLUID RETENTION
     Dosage: 80 MG DAILY
  3. POTASSIUM CHLORIDE [Concomitant]
     Indication: PRODUCT USED FOR UNKNOWN INDICATION
  4. SPIRIVA [Concomitant]
     Indication: CHRONIC OBSTRUCTIVE PULMONARY DISEASE
     Dosage: 18 MCG INHALE DAILY
  5. SPIRIVA [Concomitant]
     Indication: ASTHMA
  6. SPIRONOLACTONE [Concomitant]
     Indication: CARDIAC DISORDER
     Dosage: 25 MG DAILY
  7. WELLBUTRIN SR [Concomitant]
     Indication: PRODUCT USED FOR UNKNOWN INDICATION
     Dosage: 150 MG DAILY
  8. CEFALEXIN [Concomitant]
     Indication: HIDRADENITIS
  9. HYDROCODONE [Concomitant]
     Indication: PAIN
     Dosage: 10/325 MG 1 TAB EVERY 4-6 HOURS
  10. VITAMIN C [Concomitant]
     Indication: PRODUCT USED FOR UNKNOWN INDICATION
  11. HUMIRA [Suspect]
     Indication: HIDRADENITIS
     Dates: start: 20130627
  12. COUMADIN [Concomitant]
     Indication: THROMBOSIS
     Dosage: 6 MG DAILY
  13. ADVAIR HFA [Concomitant]
     Indication: CHRONIC OBSTRUCTIVE PULMONARY DISEASE
     Dosage: 250/50 1 PUFF
  14. ADVAIR HFA [Concomitant]
     Indication: ASTHMA
  15. ATORVASTATIN [Concomitant]
     Indication: BLOOD CHOLESTEROL
     Dosage: 40 MG DAILY
  16. BUPRON-SR [Concomitant]
     Indication: PRODUCT USED FOR UNKNOWN INDICATION
  17. CARVEDILOL [Concomitant]
     Indication: HEART RATE IRREGULAR

REACTIONS (4)
  - Expired drug administered [Recovering/Resolving]
  - Injection site pain [Recovering/Resolving]
  - Injection site haemorrhage [Recovering/Resolving]
  - Injection site bruising [Recovering/Resolving]
